FAERS Safety Report 7744454-1 (Version None)
Quarter: 2011Q3

REPORT INFORMATION
  Report Type: 
  Country: None (occurrence: None)
  Receive Date: 20110912
  Receipt Date: 20110902
  Transmission Date: 20111222
  Serious: Yes (Other)
  Sender: FDA-Public Use
  Company Number: US-BAYER-201039069NA

PATIENT
  Sex: Male

DRUGS (16)
  1. TRASYLOL [Suspect]
     Indication: CORONARY ARTERY BYPASS
     Dosage: 100 ML LOADING DOSE FOLLOWED BY 25MLL TO 10ML/HR, UNK
     Route: 042
     Dates: start: 20070919, end: 20070919
  2. SUFENTA PRESERVATIVE FREE [Concomitant]
  3. DOBUTAMINE HCL [Concomitant]
  4. LEVOPHED [Concomitant]
  5. ACETYLSALICYLIC ACID SRT [Concomitant]
  6. VERSED [Concomitant]
     Indication: AMNESIA
     Dosage: 2 MG, UNK
  7. GLUCOPHAGE [Concomitant]
  8. REMIFENTANIL [Concomitant]
     Dosage: UNK
  9. NITROGLYCERIN [Concomitant]
  10. GLIPIZIDE [Concomitant]
  11. DOXEPIN [Concomitant]
  12. PROPOFOL [Concomitant]
     Indication: SEDATIVE THERAPY
     Dosage: 50MG/KG/MIN UNK, UNK
  13. ZEMURON [Concomitant]
  14. LOPRESSOR [Concomitant]
  15. MONOPRIL [Concomitant]
  16. PANCURONIUM [Concomitant]

REACTIONS (10)
  - RENAL FAILURE [None]
  - STRESS [None]
  - RENAL IMPAIRMENT [None]
  - ANXIETY [None]
  - UNEVALUABLE EVENT [None]
  - RENAL INJURY [None]
  - FEAR [None]
  - EMOTIONAL DISTRESS [None]
  - PAIN [None]
  - INJURY [None]
